FAERS Safety Report 8759459 (Version 1)
Quarter: 2012Q4

REPORT INFORMATION
  Report Type: 
  Country: GB (occurrence: GB)
  Receive Date: 20120829
  Receipt Date: 20120829
  Transmission Date: 20130627
  Serious: Yes (Other)
  Sender: FDA-Public Use
  Company Number: GB-BAYER-2012-087637

PATIENT
  Age: 21 Year
  Sex: Male

DRUGS (1)
  1. GADOVIST 1.0 MMOL/ML SOLUTION FOR INJECTION [Suspect]
     Indication: GASTROINTESTINAL SCAN
     Dosage: 7.5 ml, ONCE
     Dates: start: 20120821, end: 20120821

REACTIONS (2)
  - Respiratory disorder [None]
  - Syncope [None]
